FAERS Safety Report 25614852 (Version 2)
Quarter: 2025Q4

REPORT INFORMATION
  Report Type: Spontaneous
  Country: AU (occurrence: AU)
  Receive Date: 20250729
  Receipt Date: 20251007
  Transmission Date: 20260117
  Serious: Yes (Hospitalization, Other)
  Sender: CSL BEHRING
  Company Number: AU-BEH-2025214285

PATIENT
  Age: 3 Year
  Sex: Male
  Weight: 15 kg

DRUGS (6)
  1. HUMAN IMMUNOGLOBULIN G [Suspect]
     Active Substance: HUMAN IMMUNOGLOBULIN G
     Indication: Kawasaki^s disease
     Dosage: 30 G ONCE ONLY
     Route: 065
  2. HUMAN IMMUNOGLOBULIN G [Suspect]
     Active Substance: HUMAN IMMUNOGLOBULIN G
     Dosage: 30 G, TOT
     Route: 042
     Dates: start: 20250722, end: 20250722
  3. HUMAN IMMUNOGLOBULIN G [Suspect]
     Active Substance: HUMAN IMMUNOGLOBULIN G
     Dosage: UNK
     Route: 065
     Dates: start: 20250724
  4. ASPIRIN [Concomitant]
     Active Substance: ASPIRIN
     Indication: Kawasaki^s disease
     Dosage: 75 MG
     Route: 048
     Dates: start: 20250722, end: 20250725
  5. CEFTRIAXONE [Concomitant]
     Active Substance: CEFTRIAXONE
     Indication: Infection
     Dosage: 730 MG
     Route: 042
     Dates: start: 20250721, end: 20250722
  6. IBUPROFEN [Concomitant]
     Active Substance: IBUPROFEN
     Indication: Kawasaki^s disease
     Dosage: 144 MG
     Route: 048
     Dates: start: 20250721, end: 20250724

REACTIONS (12)
  - Hypoxia [Recovered/Resolved]
  - Pyrexia [Recovered/Resolved]
  - Tachycardia [Recovered/Resolved]
  - Hypotension [Recovered/Resolved]
  - Vomiting [Recovered/Resolved]
  - Cyanosis [Recovered/Resolved]
  - Aspiration [Recovered/Resolved]
  - Bronchospasm [Recovered/Resolved]
  - Oxygen saturation decreased [Recovered/Resolved]
  - Atelectasis [Unknown]
  - Tachypnoea [Unknown]
  - Chills [Unknown]

NARRATIVE: CASE EVENT DATE: 20250722
